FAERS Safety Report 23548136 (Version 2)
Quarter: 2024Q1

REPORT INFORMATION
  Report Type: Spontaneous
  Country: FR (occurrence: FR)
  Receive Date: 20240221
  Receipt Date: 20240229
  Transmission Date: 20240410
  Serious: Yes (Hospitalization, Other)
  Sender: FDA-Public Use
  Company Number: None

PATIENT
  Age: 60 Year
  Sex: Male

DRUGS (3)
  1. LAMOTRIGINE [Suspect]
     Active Substance: LAMOTRIGINE
     Indication: Depressive symptom
     Dosage: 200 MG, ONCE PER DAY (AND INCREASED IN 50 MG INCREMENTS WEEKLY FOR FOUR WEEKS TO 200 MG/DAY)
  2. LAMOTRIGINE [Suspect]
     Active Substance: LAMOTRIGINE
     Dosage: 50 MG, ONCE PER DAY
  3. LAMOTRIGINE [Suspect]
     Active Substance: LAMOTRIGINE
     Dosage: AND INCREASED IN 50 MG INCREMENTS WEEKLY FOR FOUR WEEKS TO 200 MG/DAY

REACTIONS (3)
  - Drug reaction with eosinophilia and systemic symptoms [Recovering/Resolving]
  - Drug titration error [Recovered/Resolved]
  - Hepatic function abnormal [Recovered/Resolved]
